FAERS Safety Report 16287100 (Version 1)
Quarter: 2019Q2

REPORT INFORMATION
  Report Type: Spontaneous
  Country: FR (occurrence: FR)
  Receive Date: 20190508
  Receipt Date: 20190508
  Transmission Date: 20190711
  Serious: Yes (Hospitalization)
  Sender: FDA-Public Use
  Company Number: FR-TEVA-2019-FR-1045967

PATIENT
  Age: 44 Year
  Sex: Male

DRUGS (4)
  1. AMOXICILLINE [Suspect]
     Active Substance: AMOXICILLIN
     Indication: INFECTION
     Route: 048
     Dates: start: 20170712, end: 20170717
  2. PAROEX [Concomitant]
     Active Substance: CHLORHEXIDINE GLUCONATE
     Route: 002
  3. PARACETAMOL [Concomitant]
     Active Substance: ACETAMINOPHEN
     Route: 048
  4. PIVALONE 1 POUR CENT, SUSPENSION NASALE [Concomitant]
     Active Substance: TIXOCORTOL PIVALATE
     Route: 045

REACTIONS (1)
  - Drug reaction with eosinophilia and systemic symptoms [Recovered/Resolved]

NARRATIVE: CASE EVENT DATE: 20170726
